FAERS Safety Report 8786962 (Version 2)
Quarter: 2012Q4

REPORT INFORMATION
  Report Type: 
  Country: US (occurrence: US)
  Receive Date: 20120914
  Receipt Date: 20121004
  Transmission Date: 20130627
  Serious: No
  Sender: FDA-Public Use
  Company Number: US-VERTEX PHARMACEUTICAL INC.-AE-2012-011115

PATIENT
  Sex: Female
  Weight: 99 kg

DRUGS (8)
  1. VX-950 [Suspect]
     Indication: HEPATITIS C
  2. PEGASYS [Concomitant]
     Indication: HEPATITIS C
     Route: 058
     Dates: start: 2012, end: 20120720
  3. RIBASPHERE [Concomitant]
     Indication: HEPATITIS C
     Dates: start: 2012, end: 20120720
  4. ZOLPIDEM [Concomitant]
  5. PROZAC [Concomitant]
  6. LISINOPRIL-HCTZ [Concomitant]
  7. CYMBALTA [Concomitant]
  8. LEVEMIR [Concomitant]

REACTIONS (1)
  - Treatment failure [Unknown]
